FAERS Safety Report 7282520-8 (Version None)
Quarter: 2011Q1

REPORT INFORMATION
  Report Type: 
  Country: None (occurrence: None)
  Receive Date: 20110209
  Receipt Date: 20110128
  Transmission Date: 20110831
  Serious: Yes (Death, Hospitalization)
  Sender: FDA-Public Use
  Company Number: GB-JNJFOC-20110107981

PATIENT
  Age: 48 Year
  Sex: Female

DRUGS (6)
  1. MEPERIDINE HCL [Suspect]
     Indication: PRODUCT USED FOR UNKNOWN INDICATION
  2. AMPICILLIN [Suspect]
     Indication: PRODUCT USED FOR UNKNOWN INDICATION
  3. PARACETAMOL [Suspect]
     Route: 048
  4. DIAZEPAM [Suspect]
     Indication: PRODUCT USED FOR UNKNOWN INDICATION
  5. CIMETIDINE [Concomitant]
     Indication: PRODUCT USED FOR UNKNOWN INDICATION
  6. PARACETAMOL [Suspect]
     Indication: BACK PAIN
     Dosage: FOR 3 WEEKS
     Route: 048

REACTIONS (5)
  - HYPOGLYCAEMIA [None]
  - HEPATIC NECROSIS [None]
  - TOXICITY TO VARIOUS AGENTS [None]
  - RENAL FAILURE [None]
  - METABOLIC ACIDOSIS [None]
